FAERS Safety Report 8136263-9 (Version None)
Quarter: 2012Q1

REPORT INFORMATION
  Report Type: 
  Country: None (occurrence: None)
  Receive Date: 20120214
  Receipt Date: 20120206
  Transmission Date: 20120608
  Serious: Yes (Hospitalization, Other)
  Sender: FDA-Public Use
  Company Number: US-ABBOTT-12P-163-0902876-00

PATIENT
  Sex: Male

DRUGS (2)
  1. HUMIRA [Suspect]
     Dates: start: 20120117
  2. HUMIRA [Suspect]
     Indication: PSORIASIS
     Dates: start: 20110112, end: 20110701

REACTIONS (2)
  - JOINT SWELLING [None]
  - LYME DISEASE [None]
